FAERS Safety Report 4584395-4 (Version None)
Quarter: 2005Q1

REPORT INFORMATION
  Report Type: 
  Country: None (occurrence: None)
  Receive Date: 20050125
  Receipt Date: 20041004
  Transmission Date: 20050727
  Serious: Yes (Hospitalization)
  Sender: FDA-Public Use
  Company Number: USA030125794

PATIENT
  Age: 74 Year
  Sex: Female

DRUGS (14)
  1. EVISTA [Suspect]
     Indication: OSTEOPOROSIS
     Dates: start: 20000101, end: 20030108
  2. FORTEO [Suspect]
     Indication: OSTEOPOROSIS
     Dosage: 20 UG/DAY
     Dates: start: 20030108
  3. VITAMIN D [Concomitant]
  4. EQUAGESIC [Concomitant]
  5. ZINC [Concomitant]
  6. MAGNEISUM [Concomitant]
  7. CALCIUM GLUCONATE [Concomitant]
  8. LEVOXYL [Concomitant]
  9. TRAZODONE [Concomitant]
  10. QUININE [Concomitant]
  11. DICLOFENAC [Concomitant]
  12. NEURONTIN [Concomitant]
  13. FOSAMAX [Concomitant]
  14. PREMPRO [Concomitant]

REACTIONS (8)
  - ACCIDENT [None]
  - BONE DENSITY DECREASED [None]
  - DRUG INEFFECTIVE [None]
  - FALL [None]
  - FEELING ABNORMAL [None]
  - FRACTURE [None]
  - MUSCLE SPASMS [None]
  - SPINAL FRACTURE [None]
